FAERS Safety Report 18361374 (Version 1)
Quarter: 2020Q4

REPORT INFORMATION
  Report Type: Spontaneous
  Country: SK (occurrence: SK)
  Receive Date: 20201008
  Receipt Date: 20201008
  Transmission Date: 20210114
  Serious: Yes (Hospitalization)
  Sender: FDA-Public Use
  Company Number: SK-MYLANLABS-2020M1084606

PATIENT
  Age: 39 Year
  Sex: Male

DRUGS (3)
  1. TRAZODONE [Suspect]
     Active Substance: TRAZODONE HYDROCHLORIDE
     Indication: MIXED ANXIETY AND DEPRESSIVE DISORDER
     Dosage: 150 MILLIGRAM DAILY;
  2. BETAHISTINE [Suspect]
     Active Substance: BETAHISTINE
     Indication: TINNITUS
     Dosage: UNK
     Route: 065
  3. QUETIAPINE. [Suspect]
     Active Substance: QUETIAPINE
     Indication: MIXED ANXIETY AND DEPRESSIVE DISORDER
     Dosage: 100 MILLIGRAM DAILY;
     Route: 065

REACTIONS (2)
  - Depression [Not Recovered/Not Resolved]
  - Drug ineffective [Unknown]
